FAERS Safety Report 13372825 (Version 1)
Quarter: 2017Q1

REPORT INFORMATION
  Report Type: Spontaneous
  Country: US (occurrence: US)
  Receive Date: 20170325
  Receipt Date: 20170325
  Transmission Date: 20170429
  Serious: Yes (Disabling)
  Sender: FDA-Public Use
  Company Number: None

PATIENT
  Age: 70 Year
  Sex: Female
  Weight: 60.3 kg

DRUGS (7)
  1. LEVOFLOXACIN 500 MG TAB [Suspect]
     Active Substance: LEVOFLOXACIN
     Indication: URINARY TRACT INFECTION
     Dosage: ?          QUANTITY:10 TABLET(S);?
     Route: 048
     Dates: start: 20170211, end: 20170219
  2. VITAMIN D [Concomitant]
     Active Substance: CHOLECALCIFEROL
  3. CIPROFLOXACIN HCL 500 MG TAB [Suspect]
     Active Substance: CIPROFLOXACIN HYDROCHLORIDE
     Indication: URINARY TRACT INFECTION
     Dosage: ?          QUANTITY:20 TABLET(S);?
     Route: 048
     Dates: start: 20170209, end: 20170210
  4. BISOPROLOL [Concomitant]
     Active Substance: BISOPROLOL
  5. RABEPRAZOLE [Concomitant]
     Active Substance: RABEPRAZOLE
  6. LEVOFLOXACIN 500 MG TAB [Suspect]
     Active Substance: LEVOFLOXACIN
     Indication: PNEUMONIA
     Dosage: ?          QUANTITY:10 TABLET(S);?
     Route: 048
     Dates: start: 20170211, end: 20170219
  7. LORAZEPAM. [Concomitant]
     Active Substance: LORAZEPAM

REACTIONS (7)
  - Urinary tract infection [None]
  - Fatigue [None]
  - Asthenia [None]
  - Tremor [None]
  - Pneumonia [None]
  - Gait disturbance [None]
  - Panic attack [None]

NARRATIVE: CASE EVENT DATE: 20170211
